FAERS Safety Report 7217295-1 (Version None)
Quarter: 2010Q4

REPORT INFORMATION
  Report Type: 
  Country: None (occurrence: None)
  Receive Date: 20101229
  Receipt Date: 20101224
  Transmission Date: 20110411
  Serious: Yes (Death, Hospitalization)
  Sender: FDA-Public Use
  Company Number: 2010SP062649

PATIENT
  Age: 49 Year
  Sex: Female

DRUGS (6)
  1. TEMODAL [Suspect]
     Indication: GLIOBLASTOMA MULTIFORME
     Dosage: 270 MG;QOD;PO, 360 MG;QOD;PO
     Route: 048
     Dates: start: 20090415, end: 20100414
  2. TEMODAL [Suspect]
     Indication: GLIOBLASTOMA MULTIFORME
     Dosage: 270 MG;QOD;PO, 360 MG;QOD;PO
     Route: 048
     Dates: start: 20100415, end: 20100815
  3. FLUCONAZOLE [Concomitant]
  4. TEGRETOL [Concomitant]
  5. KEPPRA [Concomitant]
  6. TARGOCID [Concomitant]

REACTIONS (6)
  - APLASTIC ANAEMIA [None]
  - BONE MARROW FAILURE [None]
  - EPSTEIN-BARR VIRUS INFECTION [None]
  - LYMPHOPENIA [None]
  - NO THERAPEUTIC RESPONSE [None]
  - PYREXIA [None]
